FAERS Safety Report 11707948 (Version 2)
Quarter: 2015Q4

REPORT INFORMATION
  Report Type: Spontaneous
  Country: US (occurrence: US)
  Receive Date: 20151104
  Receipt Date: 20151110
  Transmission Date: 20160304
  Serious: No
  Sender: FDA-Public Use
  Company Number: US-ELI_LILLY_AND_COMPANY-US201101005395

PATIENT
  Age: 69 Year
  Sex: Female

DRUGS (6)
  1. CALTRATE /00108001/ [Concomitant]
     Dosage: 1 D/F, DAILY (1/D)
  2. FORTEO [Suspect]
     Active Substance: TERIPARATIDE
     Dosage: 20 UG, QD
     Route: 065
  3. CALTRATE /00108001/ [Concomitant]
     Dosage: 2 D/F, DAILY (1/D)
  4. FORTEO [Suspect]
     Active Substance: TERIPARATIDE
     Indication: OSTEOPOROSIS
     Dosage: 20 UG, QD
     Route: 065
     Dates: start: 201010
  5. FORTEO [Suspect]
     Active Substance: TERIPARATIDE
     Dosage: 20 UG, QD
     Route: 065
  6. FORTEO [Suspect]
     Active Substance: TERIPARATIDE
     Dosage: 20 UG, QD
     Route: 065

REACTIONS (7)
  - Weight increased [Not Recovered/Not Resolved]
  - Pain [Unknown]
  - Bone density decreased [Unknown]
  - Blood calcium increased [Unknown]
  - Sensory disturbance [Unknown]
  - Dysphonia [Unknown]
  - Arthralgia [Unknown]

NARRATIVE: CASE EVENT DATE: 201010
